FAERS Safety Report 7194151-9 (Version None)
Quarter: 2010Q4

REPORT INFORMATION
  Report Type: 
  Country: None (occurrence: None)
  Receive Date: 20101124
  Receipt Date: 20100923
  Transmission Date: 20110411
  Serious: No
  Sender: FDA-Public Use
  Company Number: 019263

PATIENT
  Sex: Male
  Weight: 51.3 kg

DRUGS (2)
  1. LACOSAMIDE [Suspect]
     Indication: COMPLEX PARTIAL SEIZURES
     Dosage: (100 MG BID ORAL)
     Route: 048
     Dates: start: 20100607, end: 20100803
  2. DEPAKOTE ER [Concomitant]

REACTIONS (2)
  - BREAST MASS [None]
  - GYNAECOMASTIA [None]
